FAERS Safety Report 22222364 (Version 1)
Quarter: 2023Q2

REPORT INFORMATION
  Report Type: Spontaneous
  Country: NL (occurrence: None)
  Receive Date: 20230418
  Receipt Date: 20230418
  Transmission Date: 20230722
  Serious: No
  Sender: FDA-Public Use
  Company Number: None

PATIENT
  Sex: Female
  Weight: 110 kg

DRUGS (2)
  1. ZOFRAN [Suspect]
     Active Substance: ONDANSETRON HYDROCHLORIDE
     Indication: Nausea
     Dosage: 4X PER DAG 1 ST
     Route: 048
     Dates: start: 20230320
  2. TAMIFLU [Suspect]
     Active Substance: OSELTAMIVIR PHOSPHATE
     Indication: Influenza
     Dosage: 2X PER DAG 1 ST
     Route: 048
     Dates: start: 20230320

REACTIONS (3)
  - Maternal exposure during pregnancy [Unknown]
  - Lactation puerperal increased [Not Recovered/Not Resolved]
  - Maternal exposure during breast feeding [Unknown]
